FAERS Safety Report 9773821 (Version 1)
Quarter: 2013Q4

REPORT INFORMATION
  Report Type: Spontaneous
  Country: US (occurrence: US)
  Receive Date: 20131220
  Receipt Date: 20131220
  Transmission Date: 20140711
  Serious: Yes (Hospitalization)
  Sender: FDA-Public Use
  Company Number: 2013SP000195

PATIENT
  Age: 21 Year
  Sex: Male
  Weight: 86.17 kg

DRUGS (9)
  1. VANCOMYCIN [Suspect]
     Indication: PURULENT DISCHARGE
  2. VANCOMYCIN [Suspect]
     Indication: PYREXIA
  3. PIP/TAZO [Suspect]
     Indication: PURULENT DISCHARGE
  4. PIP/TAZO [Suspect]
     Indication: PYREXIA
  5. ADALIMUMAB [Suspect]
     Indication: CROHN^S DISEASE
     Dates: start: 20120531, end: 20120531
  6. ADALIMUMAB [Suspect]
     Indication: CROHN^S DISEASE
     Dates: end: 20120617
  7. KETOROLAC TROMETHAMINE [Suspect]
     Indication: PAIN
  8. METRONIDAZOLE BENZOATE [Concomitant]
  9. REMICADE [Concomitant]

REACTIONS (1)
  - Renal failure acute [Recovered/Resolved]
